FAERS Safety Report 6684780-0 (Version None)
Quarter: 2010Q2

REPORT INFORMATION
  Report Type: 
  Country: None (occurrence: None)
  Receive Date: 20100416
  Receipt Date: 20100413
  Transmission Date: 20101027
  Serious: Yes (Death)
  Sender: FDA-Public Use
  Company Number: CO-JNJFOC-20100403340

PATIENT
  Age: 44 Year
  Sex: Male

DRUGS (3)
  1. RISPERDAL CONSTA [Suspect]
     Indication: BIPOLAR DISORDER
     Route: 030
     Dates: start: 20100330, end: 20100330
  2. VALPROIC ACID [Concomitant]
     Indication: BIPOLAR DISORDER
  3. CLOZAPINE [Concomitant]
     Indication: BIPOLAR DISORDER

REACTIONS (1)
  - COMPLETED SUICIDE [None]
